FAERS Safety Report 5924662-2 (Version None)
Quarter: 2008Q4

REPORT INFORMATION
  Report Type: 
  Country: None (occurrence: None)
  Receive Date: 20081016
  Receipt Date: 20081009
  Transmission Date: 20090506
  Serious: Yes (Hospitalization, Other)
  Sender: FDA-Public Use
  Company Number: A-US2008-21433

PATIENT
  Age: 84 Year
  Sex: Female
  Weight: 88.4 kg

DRUGS (12)
  1. TRACLEER [Suspect]
     Indication: PULMONARY HYPERTENSION
     Dosage: 125 MG, BID, ORAL; 62.5 MG, BID, ORAL
     Route: 048
     Dates: start: 20060901, end: 20061001
  2. TRACLEER [Suspect]
     Indication: PULMONARY HYPERTENSION
     Dosage: 125 MG, BID, ORAL; 62.5 MG, BID, ORAL
     Route: 048
     Dates: start: 20061001, end: 20061017
  3. TRACLEER [Suspect]
     Indication: PULMONARY HYPERTENSION
     Dosage: 125 MG, BID, ORAL; 62.5 MG, BID, ORAL
     Route: 048
     Dates: start: 20061018, end: 20070827
  4. TRACLEER [Suspect]
     Indication: PULMONARY HYPERTENSION
     Dosage: 125 MG, BID, ORAL; 62.5 MG, BID, ORAL
     Route: 048
     Dates: start: 20080611, end: 20080702
  5. COUMADIN [Concomitant]
  6. ATACAND [Concomitant]
  7. SYNTHROID [Concomitant]
  8. BUMEX [Concomitant]
  9. ATENOLOL [Concomitant]
  10. BYETTA [Concomitant]
  11. SPIRIVA [Concomitant]
  12. OXYGEN (OXYGEN) [Concomitant]

REACTIONS (7)
  - DIZZINESS [None]
  - DYSPNOEA EXERTIONAL [None]
  - FAECALOMA [None]
  - HEPATIC NEOPLASM [None]
  - HEPATITIS [None]
  - INTERNATIONAL NORMALISED RATIO INCREASED [None]
  - NEPHROLITHIASIS [None]
